FAERS Safety Report 10234715 (Version 1)
Quarter: 2014Q2

REPORT INFORMATION
  Report Type: Spontaneous
  Country: US (occurrence: None)
  Receive Date: 20140611
  Receipt Date: 20140611
  Transmission Date: 20141212
  Serious: No
  Sender: FDA-Public Use
  Company Number: None

PATIENT
  Age: 66 Year
  Sex: Female

DRUGS (5)
  1. CAPECITABINE [Suspect]
     Indication: BREAST CANCER FEMALE
     Route: 048
     Dates: start: 20140329
  2. XELODA 500 MG GENENTECH [Suspect]
     Route: 048
     Dates: start: 20140214, end: 20140328
  3. FOSAMAX [Concomitant]
  4. SYNTHROID [Concomitant]
  5. CITRACAL [Concomitant]

REACTIONS (1)
  - Erythema [None]
